FAERS Safety Report 6369524-4 (Version None)
Quarter: 2009Q3

REPORT INFORMATION
  Report Type: 
  Country: None (occurrence: None)
  Receive Date: 20090923
  Receipt Date: 20090916
  Transmission Date: 20100115
  Serious: Yes (Other)
  Sender: FDA-Public Use
  Company Number: US-JNJFOC-20090905457

PATIENT
  Sex: Female

DRUGS (13)
  1. LEVAQUIN [Suspect]
     Indication: DRUG USE FOR UNKNOWN INDICATION
     Dosage: COURSE COMPLETED
     Route: 065
  2. ALBUTEROL [Concomitant]
     Route: 065
  3. FLONASE [Concomitant]
     Route: 065
  4. LEXAPRO [Concomitant]
     Route: 065
  5. PRAZSOIN HCL [Concomitant]
     Route: 065
  6. VITAMIN D [Concomitant]
     Route: 065
  7. CALCIUM [Concomitant]
     Route: 065
  8. KLONOPIN [Concomitant]
     Route: 065
  9. ATROVENT [Concomitant]
     Route: 065
  10. DOXEPIN HCL [Concomitant]
     Route: 065
  11. NEXIUM [Concomitant]
     Route: 065
  12. ZOVIRAX [Concomitant]
     Route: 065
  13. VAGIFEM [Concomitant]
     Route: 065

REACTIONS (4)
  - CARTILAGE INJURY [None]
  - JOINT EFFUSION [None]
  - JOINT INJURY [None]
  - LIGAMENT INJURY [None]
